FAERS Safety Report 9031659 (Version 2)
Quarter: 2013Q1

REPORT INFORMATION
  Report Type: Spontaneous
  Country: JP (occurrence: JP)
  Receive Date: 20130124
  Receipt Date: 20130221
  Transmission Date: 20140127
  Serious: Yes (Other)
  Sender: FDA-Public Use
  Company Number: PHHY2013JP005791

PATIENT
  Sex: 0

DRUGS (1)
  1. SANDOSTATIN [Suspect]
     Indication: GASTROINTESTINAL OBSTRUCTION
     Dosage: 300 UG, DAILY
     Route: 058

REACTIONS (5)
  - Oliguria [Unknown]
  - Blood creatinine increased [Recovered/Resolved]
  - Pneumonia [Unknown]
  - Malignant neoplasm progression [Unknown]
  - White blood cell count increased [Recovered/Resolved]
